FAERS Safety Report 7023761-4 (Version None)
Quarter: 2010Q4

REPORT INFORMATION
  Report Type: 
  Country: None (occurrence: None)
  Receive Date: 20101001
  Receipt Date: 20100923
  Transmission Date: 20110411
  Serious: Yes (Hospitalization)
  Sender: FDA-Public Use
  Company Number: US-BAYER-201034960NA

PATIENT
  Age: 25 Year
  Sex: Female

DRUGS (1)
  1. MIRENA [Suspect]
     Indication: PRODUCT USED FOR UNKNOWN INDICATION
     Route: 015
     Dates: start: 20100303

REACTIONS (4)
  - DEVICE BREAKAGE [None]
  - DEVICE DISLOCATION [None]
  - MEDICAL DEVICE PAIN [None]
  - VAGINAL HAEMORRHAGE [None]
